FAERS Safety Report 8535685-1 (Version None)
Quarter: 2012Q3

REPORT INFORMATION
  Report Type: 
  Country: None (occurrence: None)
  Receive Date: 20120725
  Receipt Date: 20120723
  Transmission Date: 20120928
  Serious: No
  Sender: FDA-Public Use
  Company Number: US-PFIZER INC-2012172520

PATIENT
  Sex: Female

DRUGS (2)
  1. VISTARIL [Suspect]
     Dosage: 50 MG, UNK
  2. METHADONE [Suspect]
     Dosage: 60 MG, UNK

REACTIONS (3)
  - EMOTIONAL DISORDER [None]
  - DRUG SCREEN POSITIVE [None]
  - DRUG SCREEN [None]
